FAERS Safety Report 20224465 (Version 1)
Quarter: 2021Q4

REPORT INFORMATION
  Report Type: Spontaneous
  Country: US (occurrence: None)
  Receive Date: 20211223
  Receipt Date: 20211223
  Transmission Date: 20220303
  Serious: Yes (Other)
  Sender: FDA-Public Use
  Company Number: None

PATIENT
  Age: 19 Year
  Sex: Male

DRUGS (2)
  1. REGEN-COV [Suspect]
     Active Substance: CASIRIVIMAB\IMDEVIMAB
     Indication: COVID-19
     Dosage: 1 HOUR DURATION
     Route: 042
     Dates: start: 20211220
  2. REGEN- Covid (EUA) [Concomitant]
     Dates: start: 20211220

REACTIONS (8)
  - Malaise [None]
  - Nausea [None]
  - Hypoaesthesia [None]
  - Vomiting [None]
  - Paraesthesia [None]
  - Paraesthesia [None]
  - Paraesthesia [None]
  - Throat tightness [None]

NARRATIVE: CASE EVENT DATE: 20211220
